FAERS Safety Report 7421597-3 (Version None)
Quarter: 2011Q2

REPORT INFORMATION
  Report Type: 
  Country: None (occurrence: None)
  Receive Date: 20110418
  Receipt Date: 20110414
  Transmission Date: 20111010
  Serious: Yes (Other)
  Sender: FDA-Public Use
  Company Number: US-CEPHALON-2011000985

PATIENT
  Sex: Male

DRUGS (4)
  1. NUVIGIL [Suspect]
     Route: 048
  2. NUVIGIL [Suspect]
     Indication: NARCOLEPSY
     Route: 048
  3. TRAMADOL [Concomitant]
  4. MELOXICAM [Concomitant]

REACTIONS (1)
  - RASH MACULO-PAPULAR [None]
